FAERS Safety Report 8904619 (Version 1)
Quarter: 2012Q4

REPORT INFORMATION
  Report Type: 
  Country: US (occurrence: US)
  Receive Date: 20121113
  Receipt Date: 20121113
  Transmission Date: 20130627
  Serious: No
  Sender: FDA-Public Use
  Company Number: US-PFIZER INC-2012280120

PATIENT
  Age: 56 Year
  Sex: Female
  Weight: 65.76 kg

DRUGS (3)
  1. CHANTIX [Suspect]
     Indication: SMOKING CESSATION THERAPY
     Dosage: UNK
     Route: 048
     Dates: start: 2010, end: 2010
  2. CHANTIX [Suspect]
     Dosage: 0.5 mg, 1x/day
     Route: 048
     Dates: start: 20121018, end: 201210
  3. CHANTIX [Suspect]
     Dosage: 1 mg, 2x/day
     Route: 048
     Dates: start: 201210

REACTIONS (4)
  - Nausea [Not Recovered/Not Resolved]
  - Feeling abnormal [Unknown]
  - Decreased appetite [Unknown]
  - Vomiting [Unknown]
